FAERS Safety Report 19180261 (Version 1)
Quarter: 2021Q2

REPORT INFORMATION
  Report Type: Spontaneous
  Country: US (occurrence: US)
  Receive Date: 20210426
  Receipt Date: 20210426
  Transmission Date: 20210717
  Serious: Yes (Other)
  Sender: FDA-Public Use
  Company Number: US-MACLEODS PHARMACEUTICALS US LTD-MAC2021030905

PATIENT

DRUGS (1)
  1. TRIAMCINOLONE ACETONIDE. [Suspect]
     Active Substance: TRIAMCINOLONE ACETONIDE
     Indication: MACULAR OEDEMA
     Dosage: 1 DOSAGE FORM, SINGLE INJECTION, 20 MILLIGRAM/0.1 ML

REACTIONS (3)
  - Necrotising retinitis [Recovered/Resolved]
  - Retinitis viral [Recovered/Resolved]
  - Varicella zoster virus infection [Recovered/Resolved]
